FAERS Safety Report 5123537-9 (Version None)
Quarter: 2006Q3

REPORT INFORMATION
  Report Type: 
  Country: None (occurrence: None)
  Receive Date: 20060801
  Receipt Date: 20060619
  Transmission Date: 20061208
  Serious: Yes (Other)
  Sender: FDA-Public Use
  Company Number: 146271USA

PATIENT

DRUGS (1)
  1. GABAPENTIN [Suspect]
     Indication: CONVULSION
     Dates: start: 20060601

REACTIONS (2)
  - CONVULSION [None]
  - DRUG INEFFECTIVE [None]
